FAERS Safety Report 6756753-0 (Version None)
Quarter: 2010Q2

REPORT INFORMATION
  Report Type: 
  Country: None (occurrence: None)
  Receive Date: 20100604
  Receipt Date: 20100524
  Transmission Date: 20101027
  Serious: Yes (Other)
  Sender: FDA-Public Use
  Company Number: DK-ELI_LILLY_AND_COMPANY-DK201005007004

PATIENT
  Sex: Male

DRUGS (4)
  1. GEMZAR [Suspect]
     Indication: PROSTATE CANCER
     Dosage: UNK, DAY 1 AND 8 OF 21 DAY CYCLE
     Route: 042
  2. DOCETAXEL [Concomitant]
     Indication: PROSTATE CANCER
     Dosage: 75 MG/M2, DAY 1 OF 21 DAY CYCLE
     Route: 042
  3. PREDNISOLONE [Concomitant]
     Indication: PROSTATE CANCER
     Dosage: 5 MG, 2/D
     Route: 048
  4. PREDNISOLONE [Concomitant]
     Dosage: 50 MG, 12, 3 AND 1 HOURS BEFORE DOCETAXEL
     Route: 048

REACTIONS (1)
  - PLEURISY [None]
